FAERS Safety Report 25714711 (Version 1)
Quarter: 2025Q3

REPORT INFORMATION
  Report Type: Spontaneous
  Country: US (occurrence: US)
  Receive Date: 20250822
  Receipt Date: 20250822
  Transmission Date: 20251020
  Serious: No
  Sender: FRESENIUS KABI
  Company Number: US-FreseniusKabi-FK202511632

PATIENT

DRUGS (1)
  1. DIPHENHYDRAMINE [Suspect]
     Active Substance: DIPHENHYDRAMINE
     Indication: Product used for unknown indication

REACTIONS (1)
  - Sedation [Unknown]
